FAERS Safety Report 7236461-2 (Version None)
Quarter: 2011Q1

REPORT INFORMATION
  Report Type: 
  Country: None (occurrence: None)
  Receive Date: 20110120
  Receipt Date: 20101203
  Transmission Date: 20110831
  Serious: Yes (Death, Other)
  Sender: FDA-Public Use
  Company Number: NZ-ASTRAZENECA-2011SE03037

PATIENT
  Age: 45 Year
  Sex: Male

DRUGS (5)
  1. CILAZAPRIL [Concomitant]
     Route: 048
     Dates: start: 20040102
  2. CLOZAPINE [Suspect]
     Indication: SCHIZOPHRENIA
     Route: 048
     Dates: start: 20040102
  3. VALPROATE SODIUM [Concomitant]
     Route: 048
     Dates: start: 20040102
  4. EFORMOTEROL [Concomitant]
     Indication: ASTHMA
     Dosage: 24 RG, DAILY
     Route: 055
     Dates: start: 20040102
  5. SEROQUEL [Suspect]
     Route: 048
     Dates: start: 20040102

REACTIONS (2)
  - CARDIAC FAILURE [None]
  - CARDIOMYOPATHY [None]
